FAERS Safety Report 7673634-9 (Version None)
Quarter: 2011Q3

REPORT INFORMATION
  Report Type: 
  Country: None (occurrence: None)
  Receive Date: 20110810
  Receipt Date: 20110728
  Transmission Date: 20111222
  Serious: Yes (Other)
  Sender: FDA-Public Use
  Company Number: FR-UCBSA-038032

PATIENT
  Sex: Male

DRUGS (2)
  1. NO CONCOMITANT MEDICATION [Concomitant]
  2. KEPPRA [Suspect]
     Indication: EPILEPSY
     Route: 048
     Dates: start: 20110501

REACTIONS (3)
  - PROTHROMBIN TIME RATIO DECREASED [None]
  - COAGULATION FACTOR V LEVEL DECREASED [None]
  - HEPATIC FAILURE [None]
